FAERS Safety Report 22236795 (Version 1)
Quarter: 2023Q2

REPORT INFORMATION
  Report Type: Spontaneous
  Country: US (occurrence: US)
  Receive Date: 20230420
  Receipt Date: 20230420
  Transmission Date: 20230721
  Serious: No
  Sender: FDA-Public Use
  Company Number: US-APIL-2308961US

PATIENT
  Sex: Male

DRUGS (3)
  1. CYCLOSPORINE [Suspect]
     Active Substance: CYCLOSPORINE
     Indication: Product used for unknown indication
  2. TIMOLOL [Concomitant]
     Active Substance: TIMOLOL
     Dosage: UNK, QAM
  3. LATANOPROST [Concomitant]
     Active Substance: LATANOPROST
     Dosage: UNK, QHS

REACTIONS (3)
  - Ocular discomfort [Unknown]
  - Dry eye [Unknown]
  - Eye irritation [Unknown]
